FAERS Safety Report 7599917-9 (Version None)
Quarter: 2011Q3

REPORT INFORMATION
  Report Type: 
  Country: None (occurrence: None)
  Receive Date: 20110711
  Receipt Date: 20110704
  Transmission Date: 20111222
  Serious: Yes (Death)
  Sender: FDA-Public Use
  Company Number: US-ASTELLAS-2011US003644

PATIENT

DRUGS (4)
  1. TACROLIMUS [Suspect]
     Indication: LIVER TRANSPLANT
     Dosage: UNK
     Route: 065
  2. METHYLPREDNISOLONE [Concomitant]
     Indication: LIVER TRANSPLANT
     Dosage: 1 G, TOTAL DOSE
     Route: 040
  3. METHYLPREDNISOLONE [Concomitant]
     Dosage: 20 MG, UID/QD
     Route: 048
  4. METHYLPREDNISOLONE [Concomitant]
     Route: 048

REACTIONS (1)
  - RENAL FAILURE [None]
